FAERS Safety Report 7073767-4 (Version None)
Quarter: 2010Q4

REPORT INFORMATION
  Report Type: 
  Country: None (occurrence: None)
  Receive Date: 20101029
  Receipt Date: 20100812
  Transmission Date: 20110411
  Serious: No
  Sender: FDA-Public Use
  Company Number: A0875568A

PATIENT
  Age: 77 Year
  Sex: Male

DRUGS (10)
  1. ADVAIR DISKUS 100/50 [Suspect]
     Indication: CHRONIC OBSTRUCTIVE PULMONARY DISEASE
     Route: 055
     Dates: start: 20040101
  2. LORAZEPAM [Concomitant]
  3. ZOLOFT [Concomitant]
  4. ASPIRIN [Concomitant]
  5. OMEGA FISH OIL [Concomitant]
  6. LASIX [Concomitant]
  7. KLOR-CON [Concomitant]
  8. LISINOPRIL [Concomitant]
  9. UNKNOWN MEDICATION [Concomitant]
  10. ALBUTEROL [Concomitant]

REACTIONS (2)
  - COUGH [None]
  - DRY MOUTH [None]
